FAERS Safety Report 23795441 (Version 1)
Quarter: 2024Q2

REPORT INFORMATION
  Report Type: Spontaneous
  Country: CN (occurrence: CN)
  Receive Date: 20240429
  Receipt Date: 20240429
  Transmission Date: 20240716
  Serious: Yes (Other)
  Sender: FDA-Public Use
  Company Number: CN-PFIZER INC-PV202400055271

PATIENT
  Age: 16 Day
  Sex: Male
  Weight: 3.89 kg

DRUGS (1)
  1. AZITHROMYCIN [Suspect]
     Active Substance: AZITHROMYCIN
     Indication: Infection
     Dosage: 0.04 G, 1X/DAY
     Route: 048
     Dates: start: 20240406, end: 20240411

REACTIONS (3)
  - Liver injury [Recovered/Resolved]
  - Hepatic function abnormal [Recovered/Resolved]
  - Off label use [Unknown]

NARRATIVE: CASE EVENT DATE: 20240406
